FAERS Safety Report 13963985 (Version 1)
Quarter: 2017Q3

REPORT INFORMATION
  Report Type: Report from Study
  Country: NL (occurrence: NL)
  Receive Date: 20170913
  Receipt Date: 20170913
  Transmission Date: 20171128
  Serious: Yes (Other)
  Sender: FDA-Public Use
  Company Number: NL-ROCHE-1921400

PATIENT

DRUGS (7)
  1. ALTEPLASE. [Suspect]
     Active Substance: ALTEPLASE
     Indication: ACUTE MYOCARDIAL INFARCTION
     Route: 040
  2. ASPIRIN. [Suspect]
     Active Substance: ASPIRIN
     Indication: ACUTE MYOCARDIAL INFARCTION
     Route: 042
  3. HEPARIN [Suspect]
     Active Substance: HEPARIN SODIUM
     Indication: ACUTE MYOCARDIAL INFARCTION
     Dosage: 5000U
     Route: 040
  4. ARGATROBAN. [Suspect]
     Active Substance: ARGATROBAN
     Indication: ACUTE MYOCARDIAL INFARCTION
     Route: 040
  5. ASPIRIN. [Suspect]
     Active Substance: ASPIRIN
     Dosage: 75-200MG
     Route: 048
  6. HEPARIN [Suspect]
     Active Substance: HEPARIN SODIUM
     Dosage: INITIAL INFUSION OF 1000U/H
     Route: 042
  7. ARGATROBAN. [Suspect]
     Active Substance: ARGATROBAN
     Dosage: 3UG/KG/MIN
     Route: 042

REACTIONS (4)
  - Haemorrhagic stroke [Unknown]
  - Haematemesis [Unknown]
  - Haemoptysis [Unknown]
  - Haematuria [Unknown]
